FAERS Safety Report 5378067-6 (Version None)
Quarter: 2007Q3

REPORT INFORMATION
  Report Type: 
  Country: None (occurrence: None)
  Receive Date: 20070702
  Receipt Date: 20070622
  Transmission Date: 20080115
  Serious: Yes (Other)
  Sender: FDA-Public Use
  Company Number: WAES 0706USA04847

PATIENT
  Age: 55 Year
  Sex: Male
  Weight: 104.7809 kg

DRUGS (6)
  1. VORINOSTAT [Suspect]
     Indication: MULTIPLE MYELOMA
     Dosage: 400 MG/DAILY/PO
     Route: 048
     Dates: start: 20070410
  2. VELCADE [Suspect]
     Indication: MULTIPLE MYELOMA
     Dosage: 1.9 MG/DAILY/IV
     Route: 042
     Dates: start: 20070410, end: 20070615
  3. CENTRUM [Concomitant]
  4. FOSAMAX [Concomitant]
  5. VALTREX [Concomitant]
  6. VITAMIN B COMPLEX CAP [Concomitant]

REACTIONS (2)
  - ACTIVITIES OF DAILY LIVING IMPAIRED [None]
  - NEUROPATHY PERIPHERAL [None]
